FAERS Safety Report 5513456-8 (Version None)
Quarter: 2007Q4

REPORT INFORMATION
  Report Type: 
  Country: None (occurrence: None)
  Receive Date: 20071112
  Receipt Date: 20071031
  Transmission Date: 20080405
  Serious: Yes (Other)
  Sender: FDA-Public Use
  Company Number: US-PFIZER INC-2007092022

PATIENT
  Sex: Male
  Weight: 104.3 kg

DRUGS (1)
  1. GEODON [Suspect]
     Indication: BIPOLAR DISORDER

REACTIONS (4)
  - DYSPHASIA [None]
  - MUSCLE TIGHTNESS [None]
  - SWOLLEN TONGUE [None]
  - VISION BLURRED [None]
